FAERS Safety Report 7739277-3 (Version None)
Quarter: 2011Q3

REPORT INFORMATION
  Report Type: 
  Country: None (occurrence: None)
  Receive Date: 20110909
  Receipt Date: 20110905
  Transmission Date: 20111222
  Serious: Yes (Hospitalization)
  Sender: FDA-Public Use
  Company Number: JP-JNJFOC-20110804551

PATIENT
  Sex: Female

DRUGS (3)
  1. LEVOFLOXACIN [Suspect]
     Indication: CYSTITIS
     Route: 048
     Dates: start: 20110728, end: 20110728
  2. SELBEX [Concomitant]
     Route: 065
  3. LOBU [Suspect]
     Indication: CYSTITIS
     Route: 065
     Dates: start: 20110728

REACTIONS (2)
  - ASTHENIA [None]
  - ALTERED STATE OF CONSCIOUSNESS [None]
